FAERS Safety Report 7954071-6 (Version None)
Quarter: 2011Q4

REPORT INFORMATION
  Report Type: 
  Country: None (occurrence: None)
  Receive Date: 20111202
  Receipt Date: 20111125
  Transmission Date: 20120403
  Serious: Yes (Hospitalization)
  Sender: FDA-Public Use
  Company Number: US-BAYER-201033137NA

PATIENT
  Age: 39 Year
  Sex: Female
  Weight: 59 kg

DRUGS (13)
  1. YAZ [Suspect]
     Indication: PREMENSTRUAL SYNDROME
  2. AZITHROMYCIN [Concomitant]
     Indication: INFECTION
     Dosage: UNK
     Dates: start: 20081205, end: 20081210
  3. MAXALT [Concomitant]
     Dosage: UNK
     Dates: start: 20081027, end: 20081102
  4. MAXALT [Concomitant]
     Dosage: UNK
     Dates: start: 20081105, end: 20081205
  5. CEREBREX [Concomitant]
     Dosage: UNK
     Dates: start: 20081212
  6. LUNESTA [Concomitant]
     Indication: INSOMNIA
     Dosage: UNK
     Dates: start: 20080501, end: 20090111
  7. SERTRALINE HYDROCHLORIDE [Concomitant]
     Indication: DEPRESSION
     Dosage: UNK
     Dates: start: 20080601, end: 20090601
  8. NEXIUM [Concomitant]
     Indication: GASTROOESOPHAGEAL REFLUX DISEASE
     Dosage: UNK
     Dates: start: 20081212, end: 20090301
  9. TRAMADOL HYDROCHLORIDE [Concomitant]
     Dosage: 50 MG, UNK
     Dates: start: 20081015
  10. ASACOL [Concomitant]
     Indication: DIARRHOEA
     Dosage: UNK
     Dates: start: 20081211, end: 20090111
  11. HYDROCODONE BITARTRATE AND ACETAMINOPHEN [Concomitant]
     Dosage: UNK
     Dates: start: 20081014
  12. YAZ [Suspect]
     Indication: ORAL CONTRACEPTION
     Dosage: UNK UNK, QD
     Route: 048
     Dates: start: 20081001, end: 20081001
  13. BROMOCRIPTINE MESYLATE [Concomitant]
     Dosage: 2.5 MG, UNK
     Dates: start: 20081008

REACTIONS (4)
  - ANXIETY [None]
  - DEPRESSION [None]
  - PULMONARY EMBOLISM [None]
  - FEAR OF DEATH [None]
